FAERS Safety Report 7312398-5 (Version None)
Quarter: 2011Q1

REPORT INFORMATION
  Report Type: 
  Country: None (occurrence: None)
  Receive Date: 20110224
  Receipt Date: 20110207
  Transmission Date: 20110831
  Serious: Yes (Life-Threatening, Hospitalization, Other)
  Sender: FDA-Public Use
  Company Number: US-BAYER-201032306NA

PATIENT
  Sex: Female
  Weight: 104.31 kg

DRUGS (5)
  1. COPAXONE [Concomitant]
     Dosage: 20 MG, HS
     Route: 048
  2. YASMIN [Suspect]
     Indication: PRODUCT USED FOR UNKNOWN INDICATION
     Route: 048
     Dates: start: 20031126
  3. ADVAIR DISKUS 100/50 [Concomitant]
     Indication: ASTHMA
     Dosage: 1 PUFF(S), BID
     Route: 055
  4. YASMIN [Suspect]
     Dosage: UNK
     Dates: start: 20031201, end: 20040201
  5. ALBUTEROL [Concomitant]
     Indication: ASTHMA
     Dosage: UNK UNK, PRN

REACTIONS (8)
  - DEEP VEIN THROMBOSIS [None]
  - FLUSHING [None]
  - PULMONARY EMBOLISM [None]
  - UTERINE ENLARGEMENT [None]
  - HEADACHE [None]
  - THROMBOPHLEBITIS SUPERFICIAL [None]
  - DYSPNOEA [None]
  - BLOOD PRESSURE INCREASED [None]
